FAERS Safety Report 9609318 (Version 1)
Quarter: 2013Q4

REPORT INFORMATION
  Report Type: Spontaneous
  Country: US (occurrence: US)
  Receive Date: 20131009
  Receipt Date: 20131009
  Transmission Date: 20140711
  Serious: Yes (Hospitalization)
  Sender: FDA-Public Use
  Company Number: US-FRI-1000049715

PATIENT
  Sex: Male

DRUGS (2)
  1. LEXAPRO [Suspect]
     Indication: DEPRESSION
     Dosage: 10 MG
     Route: 048
  2. SOTALOL [Concomitant]
     Dosage: 160 MG

REACTIONS (2)
  - Cellulitis [Not Recovered/Not Resolved]
  - Abscess limb [Not Recovered/Not Resolved]
